FAERS Safety Report 6178278-6 (Version None)
Quarter: 2009Q2

REPORT INFORMATION
  Report Type: 
  Country: None (occurrence: None)
  Receive Date: 20090504
  Receipt Date: 20090421
  Transmission Date: 20091009
  Serious: Yes (Other)
  Sender: FDA-Public Use
  Company Number: B0570007A

PATIENT
  Sex: Female

DRUGS (1)
  1. CLENIL MODULITE [Suspect]
     Indication: COUGH
     Dosage: 400MCG PER DAY
     Route: 055
     Dates: start: 20080709, end: 20090326

REACTIONS (4)
  - CONDITION AGGRAVATED [None]
  - COUGH [None]
  - OROPHARYNGEAL PAIN [None]
  - WHEEZING [None]
